FAERS Safety Report 18410740 (Version 2)
Quarter: 2020Q4

REPORT INFORMATION
  Report Type: Report from Study
  Country: FR (occurrence: FR)
  Receive Date: 20201021
  Receipt Date: 20201221
  Transmission Date: 20210114
  Serious: Yes (Other)
  Sender: FDA-Public Use
  Company Number: FR-MYLANLABS-2020M1088247

PATIENT
  Age: 73 Year
  Sex: Female
  Weight: 96 kg

DRUGS (15)
  1. BISOPROLOL [Concomitant]
     Active Substance: BISOPROLOL
     Indication: CARDIAC FAILURE
     Dosage: UNK
     Dates: start: 20200922
  2. ENOXAPARIN [Suspect]
     Active Substance: ENOXAPARIN
     Indication: PRODUCT USED FOR UNKNOWN INDICATION
     Dosage: 1000 INTERNATIONAL UNIT, BID
     Route: 058
     Dates: start: 20200923
  3. REMDESIVIR. [Suspect]
     Active Substance: REMDESIVIR
     Indication: COVID-19
     Dosage: 200MG ON D1 THEN 100MG D2 TO D5
     Route: 042
     Dates: start: 20200923, end: 20200927
  4. PARACETAMOL [Suspect]
     Active Substance: ACETAMINOPHEN
     Indication: PRODUCT USED FOR UNKNOWN INDICATION
     Dosage: 1 GRAM, QD
     Route: 042
     Dates: start: 20200922, end: 20200926
  5. DEXAMETHASONE. [Concomitant]
     Active Substance: DEXAMETHASONE
     Indication: PRODUCT USED FOR UNKNOWN INDICATION
     Dosage: 6 MILLIGRAM, QD
     Route: 030
     Dates: start: 20200922, end: 20200926
  6. AMIODARONE                         /00133102/ [Concomitant]
     Active Substance: AMIODARONE
     Indication: ARRHYTHMIA
     Dosage: UNK
  7. IVERMECTIN. [Suspect]
     Active Substance: IVERMECTIN
     Indication: PRODUCT USED FOR UNKNOWN INDICATION
     Dosage: 18 MILLIGRAM, QD
     Route: 048
     Dates: start: 20200922, end: 20200922
  8. DIFFU K [Concomitant]
     Active Substance: POTASSIUM CHLORIDE
     Dosage: UNK
     Dates: start: 20200922
  9. ROCEPHINE [Concomitant]
     Active Substance: CEFTRIAXONE SODIUM
     Indication: LUNG DISORDER
     Dosage: UNK
     Route: 042
     Dates: end: 20200921
  10. CEFTRIAXONE. [Suspect]
     Active Substance: CEFTRIAXONE
     Indication: LUNG DISORDER
     Dosage: 100 MILLILITER, QD
     Route: 042
     Dates: start: 20200922, end: 20200926
  11. PARACETAMOL [Suspect]
     Active Substance: ACETAMINOPHEN
     Dosage: 1 GRAM, TID
     Route: 042
     Dates: start: 20200926
  12. ROVAMYCINE                         /00074401/ [Concomitant]
     Active Substance: SPIRAMYCIN
     Indication: LUNG DISORDER
     Dosage: UNK
     Route: 042
     Dates: start: 20200921, end: 20200922
  13. CEFTRIAXONE. [Suspect]
     Active Substance: CEFTRIAXONE
     Dosage: 1 GRAM, QD
     Route: 042
     Dates: start: 20200921
  14. OXYGEN. [Concomitant]
     Active Substance: OXYGEN
     Dosage: UNK
  15. ELIQUIS [Concomitant]
     Active Substance: APIXABAN
     Indication: THROMBOSIS PROPHYLAXIS
     Dosage: UNK

REACTIONS (2)
  - Cholestasis [Recovered/Resolved]
  - Hepatocellular injury [Recovered/Resolved]

NARRATIVE: CASE EVENT DATE: 20200928
